FAERS Safety Report 9992520 (Version 4)
Quarter: 2020Q3

REPORT INFORMATION
  Report Type: Spontaneous
  Country: US (occurrence: US)
  Receive Date: 20140310
  Receipt Date: 20200831
  Transmission Date: 20201103
  Serious: Yes (Other)
  Sender: FDA-Public Use
  Company Number: US-PFIZER INC-2014066113

PATIENT
  Age: 55 Year
  Sex: Female
  Weight: 82 kg

DRUGS (8)
  1. SIMVASTATIN. [Concomitant]
     Active Substance: SIMVASTATIN
     Dosage: 40 MG, 1X/DAY
     Dates: start: 200712, end: 200805
  2. SIMVASTATIN. [Concomitant]
     Active Substance: SIMVASTATIN
     Dosage: 80 MG, 1X/DAY
     Dates: start: 200805
  3. LIPITOR [Suspect]
     Active Substance: ATORVASTATIN CALCIUM
     Indication: BLOOD TRIGLYCERIDES INCREASED
     Dosage: 20 MG, 1X/DAY
     Route: 048
     Dates: start: 2005, end: 200712
  4. LORAZEPAM. [Concomitant]
     Active Substance: LORAZEPAM
     Indication: ANXIETY
     Dosage: UNK, AS NEEDED
     Dates: start: 2004
  5. SIMVASTATIN. [Concomitant]
     Active Substance: SIMVASTATIN
     Indication: BLOOD CHOLESTEROL INCREASED
     Dosage: 1 DF, DAILY
     Route: 048
  6. GABAPENTIN. [Concomitant]
     Active Substance: GABAPENTIN
     Dosage: 1 DF, DAILY
     Route: 048
  7. HYDROCHLOROTHIAZIDE. [Concomitant]
     Active Substance: HYDROCHLOROTHIAZIDE
     Dosage: 25 MG, DAILY
     Route: 048
  8. LIPITOR [Suspect]
     Active Substance: ATORVASTATIN CALCIUM
     Indication: BLOOD CHOLESTEROL INCREASED
     Dosage: UNK
     Route: 048
     Dates: start: 2003

REACTIONS (3)
  - Type 2 diabetes mellitus [Not Recovered/Not Resolved]
  - Arthritis [Not Recovered/Not Resolved]
  - Fibromyalgia [Not Recovered/Not Resolved]

NARRATIVE: CASE EVENT DATE: 20100215
